FAERS Safety Report 4371903-1 (Version None)
Quarter: 2004Q2

REPORT INFORMATION
  Report Type: 
  Country: None (occurrence: None)
  Receive Date: 20040602
  Receipt Date: 20040518
  Transmission Date: 20050107
  Serious: No
  Sender: FDA-Public Use
  Company Number: 04H-163-0261865-00

PATIENT
  Age: 59 Year
  Sex: Female

DRUGS (1)
  1. HEPARIN SODIUM [Suspect]
     Indication: THROMBOSIS PROPHYLAXIS
     Dosage: 5500 UNIT, ONCE, INTRAVENOUS BOLUS
     Route: 040

REACTIONS (5)
  - DRUG SPECIFIC ANTIBODY PRESENT [None]
  - DYSPNOEA [None]
  - HEPARIN-INDUCED THROMBOCYTOPENIA [None]
  - HYPOTENSION [None]
  - TACHYCARDIA [None]
